FAERS Safety Report 23861913 (Version 1)
Quarter: 2024Q2

REPORT INFORMATION
  Report Type: Spontaneous
  Country: UA (occurrence: UA)
  Receive Date: 20240516
  Receipt Date: 20240516
  Transmission Date: 20240716
  Serious: Yes (Death)
  Sender: FDA-Public Use
  Company Number: UA-MYLANLABS-2024M1044408

PATIENT
  Age: 87 Year
  Sex: Male

DRUGS (5)
  1. PRETOMANID [Suspect]
     Active Substance: PRETOMANID
     Indication: Pulmonary tuberculosis
     Dosage: 200 MILLIGRAM, QD
     Route: 048
     Dates: start: 20240320, end: 20240426
  2. LINEZOLID [Suspect]
     Active Substance: LINEZOLID
     Indication: Pulmonary tuberculosis
     Dosage: 600 MILLIGRAM, QD
     Route: 048
     Dates: start: 20240320, end: 20240426
  3. MOXIFLOXACIN [Suspect]
     Active Substance: MOXIFLOXACIN
     Indication: Pulmonary tuberculosis
     Dosage: 400 MILLIGRAM, QD
     Route: 048
     Dates: start: 20240320, end: 20240426
  4. BEDAQUILINE [Suspect]
     Active Substance: BEDAQUILINE
     Indication: Pulmonary tuberculosis
     Dosage: 200 MILLIGRAM, 3XW
     Route: 048
     Dates: start: 20240320, end: 20240426
  5. SIRTURO [Concomitant]
     Active Substance: BEDAQUILINE FUMARATE
     Dosage: UNK (188 TABLETS IN A BOTTLE, 1 BOTTLE IN A CARDBOARD BOX; 6 TABLES EACH.)
     Route: 065
     Dates: start: 20240320, end: 20240426

REACTIONS (1)
  - Death [Fatal]

NARRATIVE: CASE EVENT DATE: 20240426
